FAERS Safety Report 15298570 (Version 1)
Quarter: 2018Q3

REPORT INFORMATION
  Report Type: Spontaneous
  Country: FR (occurrence: FR)
  Receive Date: 20180820
  Receipt Date: 20180820
  Transmission Date: 20181010
  Serious: Yes (Hospitalization, Other)
  Sender: FDA-Public Use
  Company Number: FR-PURDUE PHARMA-GBR-2016-0036363

PATIENT
  Age: 79 Year
  Sex: Male

DRUGS (23)
  1. MOVICOL [Suspect]
     Active Substance: POLYETHYLENE GLYCOL 3350\POTASSIUM CHLORIDE\SODIUM BICARBONATE\SODIUM CHLORIDE
     Indication: CONSTIPATION
     Dosage: 1 SACHET, PRN
     Route: 048
     Dates: start: 20160413, end: 20160425
  2. LEVOFLOXACINE [Suspect]
     Active Substance: LEVOFLOXACIN
     Indication: LUNG DISORDER
     Dosage: 500 MG, BID
     Route: 042
     Dates: start: 20160406, end: 20160413
  3. MICARDIS [Concomitant]
     Active Substance: TELMISARTAN
     Dosage: 1 TABLET, DAILY (IN THE MORNING)
  4. LOVENOX [Suspect]
     Active Substance: ENOXAPARIN SODIUM
     Indication: THROMBOSIS PROPHYLAXIS
     Dosage: 4000 IU, DAILY
     Route: 058
     Dates: start: 20160401, end: 20160425
  5. ESOMEPRAZOLE [Concomitant]
     Active Substance: ESOMEPRAZOLE
     Dosage: 1/DAY IN THE MORNING
  6. AMOXICILLINE/ACIDE CLAVULANIQUE [Suspect]
     Active Substance: AMOXICILLIN\CLAVULANIC ACID
     Indication: LUNG DISORDER
     Dosage: UNK
     Route: 042
     Dates: start: 20160405, end: 20160406
  7. PARACETAMOL [Concomitant]
     Active Substance: ACETAMINOPHEN
  8. FLUOXETINE [Concomitant]
     Active Substance: FLUOXETINE HYDROCHLORIDE
     Dosage: 1/DAY IN THE EVENING
  9. ATENOLOL. [Concomitant]
     Active Substance: ATENOLOL
     Dosage: 0.5/DAY IN THE MORNING
  10. TANGANIL                           /00129601/ [Concomitant]
     Dosage: UNK, TID
  11. BETASERC                           /00141801/ [Concomitant]
     Active Substance: BETAHISTINE
     Dosage: 24 MG, BID
  12. PIPERACILLIN/TAZOBACTAM [Suspect]
     Active Substance: PIPERACILLIN SODIUM\TAZOBACTAM SODIUM
     Indication: LUNG DISORDER
     Dosage: 4 G, TID
     Route: 042
     Dates: start: 20160413, end: 20160425
  13. ZOPHREN                            /00955301/ [Suspect]
     Active Substance: ONDANSETRON
     Indication: NAUSEA
     Dosage: 1 TABLET, PRN
     Route: 048
     Dates: start: 20160407, end: 20160425
  14. LASILIX                            /00032601/ [Suspect]
     Active Substance: FUROSEMIDE
     Dosage: 20 MG, PRN
     Route: 048
     Dates: start: 20160405, end: 20160408
  15. LYRICA [Concomitant]
     Active Substance: PREGABALIN
     Dosage: 2 DF, BID
  16. OXYNORMORO COMPRIME ORODISPERSIBLE [Suspect]
     Active Substance: OXYCODONE
     Indication: PAIN
     Dosage: 10 MG, TID (IF NEEDED)
     Route: 048
     Dates: start: 20160413, end: 20160425
  17. PIPERACILLIN/TAZOBACTAM [Suspect]
     Active Substance: PIPERACILLIN SODIUM\TAZOBACTAM SODIUM
     Dosage: 4 G, TID
     Route: 042
     Dates: start: 20160402, end: 20160404
  18. METRONIDAZOLE. [Suspect]
     Active Substance: METRONIDAZOLE
     Indication: LUNG DISORDER
     Dosage: 500 MG, TID
     Route: 042
     Dates: start: 20160408, end: 20160411
  19. NEFOPAM [Suspect]
     Active Substance: NEFOPAM
     Indication: PAIN
     Dosage: 20 MG, PRN
     Route: 042
     Dates: start: 20160409, end: 20160413
  20. LASILIX                            /00032601/ [Suspect]
     Active Substance: FUROSEMIDE
     Indication: PRODUCT USED FOR UNKNOWN INDICATION
     Dosage: 20 MG, PRN
     Route: 048
     Dates: start: 20160421, end: 20160423
  21. ROVAMYCINE                         /00074401/ [Suspect]
     Active Substance: SPIRAMYCIN
     Indication: LUNG DISORDER
     Dosage: 1.5 MILLION IU, TID
     Route: 042
     Dates: start: 20160413, end: 20160425
  22. XATRAL [Concomitant]
     Active Substance: ALFUZOSIN
     Dosage: 1 TABLET, DAILY (IN THE EVENING)
  23. LAROXYL [Concomitant]
     Active Substance: AMITRIPTYLINE HYDROCHLORIDE
     Dosage: 6 DROPS AT BEDTIME

REACTIONS (3)
  - Renal failure [Unknown]
  - Febrile bone marrow aplasia [Unknown]
  - Stevens-Johnson syndrome [Not Recovered/Not Resolved]

NARRATIVE: CASE EVENT DATE: 20160425
